FAERS Safety Report 4957756-9 (Version None)
Quarter: 2006Q1

REPORT INFORMATION
  Report Type: 
  Country: None (occurrence: None)
  Receive Date: 20060330
  Receipt Date: 20060322
  Transmission Date: 20060701
  Serious: Yes (Hospitalization)
  Sender: FDA-Public Use
  Company Number: PHBS2006JP04353

PATIENT
  Age: 45 Year
  Sex: Female

DRUGS (2)
  1. CYCLOSPORINE [Suspect]
     Indication: RENAL TRANSPLANT
     Route: 065
  2. AZATHIOPRINE [Concomitant]
     Indication: RENAL TRANSPLANT

REACTIONS (1)
  - MENINGIOMA [None]
